FAERS Safety Report 9671470 (Version 1)
Quarter: 2013Q4

REPORT INFORMATION
  Report Type: Report from Study
  Country: CA (occurrence: CA)
  Receive Date: 20131106
  Receipt Date: 20131106
  Transmission Date: 20140711
  Serious: Yes (Life-Threatening, Hospitalization, Other)
  Sender: FDA-Public Use
  Company Number: CA-B.I. PHARMACEUTICALS,INC./RIDGEFIELD-2013-BI-35133GD

PATIENT
  Age: 85 Year
  Sex: Female

DRUGS (2)
  1. PRADAXA [Suspect]
     Dosage: 150 MG
     Route: 048
  2. ASPIRIN [Suspect]
     Dosage: 81 MG

REACTIONS (3)
  - Pericardial haemorrhage [Recovered/Resolved]
  - Pericardial effusion [Recovered/Resolved]
  - Hypotension [Unknown]
